APPROVED DRUG PRODUCT: POTASSIUM CHLORIDE 40MEQ IN PLASTIC CONTAINER
Active Ingredient: POTASSIUM CHLORIDE
Strength: 2.98GM/100ML
Dosage Form/Route: INJECTABLE;INJECTION
Application: N020161 | Product #004 | TE Code: AP
Applicant: OTSUKA ICU MEDICAL LLC
Approved: Aug 11, 1998 | RLD: Yes | RS: Yes | Type: RX